FAERS Safety Report 19009817 (Version 1)
Quarter: 2021Q1

REPORT INFORMATION
  Report Type: Report from Study
  Country: US (occurrence: US)
  Receive Date: 20210316
  Receipt Date: 20210316
  Transmission Date: 20210420
  Serious: Yes (Other)
  Sender: FDA-Public Use
  Company Number: US-BIOGEN-2021BI00989298

PATIENT
  Age: 44 Year
  Sex: Female

DRUGS (1)
  1. VUMERITY [Suspect]
     Active Substance: DIROXIMEL FUMARATE
     Indication: MULTIPLE SCLEROSIS
     Dosage: TAKE 2 CAPSULES (462MG) BY MOUTH TWICE DAILY.
     Route: 048

REACTIONS (8)
  - Cardiac flutter [Unknown]
  - Vomiting [Unknown]
  - Diarrhoea [Unknown]
  - Paraesthesia [Unknown]
  - Dyspnoea [Unknown]
  - Dizziness [Unknown]
  - Abdominal discomfort [Unknown]
  - Accidental underdose [Unknown]

NARRATIVE: CASE EVENT DATE: 202103
